FAERS Safety Report 8541528-2 (Version None)
Quarter: 2012Q3

REPORT INFORMATION
  Report Type: 
  Country: None (occurrence: None)
  Receive Date: 20120726
  Receipt Date: 20110919
  Transmission Date: 20120928
  Serious: No
  Sender: FDA-Public Use
  Company Number: US-ASTRAZENECA-2011SE56087

PATIENT
  Age: 43 Year
  Sex: Female
  Weight: 74.8 kg

DRUGS (2)
  1. SEROQUEL [Suspect]
     Indication: DEPRESSION
     Dosage: 100 MG BID
     Route: 048
  2. FLUE SHOT [Suspect]

REACTIONS (3)
  - MALAISE [None]
  - FALL [None]
  - GAIT DISTURBANCE [None]
